FAERS Safety Report 13301101 (Version 3)
Quarter: 2017Q2

REPORT INFORMATION
  Report Type: Spontaneous
  Country: JP (occurrence: JP)
  Receive Date: 20170307
  Receipt Date: 20170404
  Transmission Date: 20170830
  Serious: Yes (Hospitalization, Other)
  Sender: FDA-Public Use
  Company Number: PHJP2017JP007384

PATIENT
  Age: 71 Year
  Sex: Female

DRUGS (3)
  1. EXEMESTANE. [Concomitant]
     Active Substance: EXEMESTANE
     Indication: PRODUCT USED FOR UNKNOWN INDICATION
     Dosage: UNK
     Route: 065
  2. PACLITAXEL. [Concomitant]
     Active Substance: PACLITAXEL
     Indication: PRODUCT USED FOR UNKNOWN INDICATION
     Dosage: UNK
     Route: 065
  3. ZOMETA [Suspect]
     Active Substance: ZOLEDRONIC ACID
     Indication: METASTASES TO SPINE
     Dosage: UNK
     Route: 042
     Dates: start: 200711, end: 201402

REACTIONS (11)
  - Ulcer [Unknown]
  - Bone loss [Unknown]
  - Osteonecrosis of jaw [Recovered/Resolved]
  - Anaemia [Recovered/Resolved]
  - Pyrexia [Recovering/Resolving]
  - Respiration abnormal [Recovering/Resolving]
  - Staphylococcal infection [Recovered/Resolved]
  - C-reactive protein increased [Recovering/Resolving]
  - Depressed level of consciousness [Recovering/Resolving]
  - Abscess jaw [Unknown]
  - Nutritional condition abnormal [Recovered/Resolved]

NARRATIVE: CASE EVENT DATE: 201402
